FAERS Safety Report 9246397 (Version 1)
Quarter: 2013Q2

REPORT INFORMATION
  Report Type: Spontaneous
  Country: JP (occurrence: JP)
  Receive Date: 20130422
  Receipt Date: 20130422
  Transmission Date: 20140414
  Serious: Yes (Life-Threatening)
  Sender: FDA-Public Use
  Company Number: JP-ASTRAZENECA-2013SE26520

PATIENT
  Age: 36 Year
  Sex: Female

DRUGS (2)
  1. FASLODEX [Suspect]
     Indication: BREAST CANCER
     Route: 030
     Dates: start: 20130215
  2. UNKNOW DRUG [Suspect]
     Dosage: DOSE UNKNOWN
     Route: 041
     Dates: start: 201303

REACTIONS (3)
  - Dyspnoea [Recovering/Resolving]
  - Interstitial lung disease [Recovering/Resolving]
  - Lymphangiosis carcinomatosa [Recovering/Resolving]
